FAERS Safety Report 9495808 (Version 1)
Quarter: 2013Q3

REPORT INFORMATION
  Report Type: Spontaneous
  Country: TW (occurrence: TW)
  Receive Date: 20130903
  Receipt Date: 20130903
  Transmission Date: 20140515
  Serious: Yes (Hospitalization)
  Sender: FDA-Public Use
  Company Number: TW-CELGENEUS-153-21880-13083227

PATIENT
  Sex: Male

DRUGS (1)
  1. REVLIMID [Suspect]
     Indication: PLASMA CELL MYELOMA
     Route: 048

REACTIONS (4)
  - Hyperviscosity syndrome [Unknown]
  - Altered state of consciousness [Unknown]
  - Sepsis [Unknown]
  - Plasma cell myeloma [Unknown]
